FAERS Safety Report 24170831 (Version 1)
Quarter: 2024Q3

REPORT INFORMATION
  Report Type: Spontaneous
  Country: AU (occurrence: AU)
  Receive Date: 20240805
  Receipt Date: 20240805
  Transmission Date: 20241017
  Serious: Yes (Other)
  Sender: DR REDDYS
  Company Number: AU-AUS-SPO/AUS/24/0011172

PATIENT
  Sex: Female

DRUGS (3)
  1. LEVETIRACETAM [Suspect]
     Active Substance: LEVETIRACETAM
     Indication: Product used for unknown indication
  2. BRIVARACETAM [Suspect]
     Active Substance: BRIVARACETAM
     Indication: Product used for unknown indication
  3. LAMOTRIGINE [Suspect]
     Active Substance: LAMOTRIGINE
     Indication: Product used for unknown indication

REACTIONS (20)
  - Suicidal ideation [Unknown]
  - Seizure [Unknown]
  - Amnesia [Unknown]
  - Anxiety [Unknown]
  - Asthenia [Unknown]
  - Balance disorder [Unknown]
  - Feeling drunk [Unknown]
  - Hypoaesthesia [Unknown]
  - Joint noise [Unknown]
  - Mood swings [Unknown]
  - Pain [Unknown]
  - Skin lesion [Unknown]
  - Tremor [Unknown]
  - Vision blurred [Unknown]
  - Confusional state [Unknown]
  - Depression [Unknown]
  - Disturbance in attention [Unknown]
  - Dizziness [Unknown]
  - Dry skin [Unknown]
  - Fatigue [Unknown]
